FAERS Safety Report 9526929 (Version 2)
Quarter: 2014Q2

REPORT INFORMATION
  Report Type: Spontaneous
  Country: US (occurrence: US)
  Receive Date: 20130916
  Receipt Date: 20140507
  Transmission Date: 20141212
  Serious: No
  Sender: FDA-Public Use
  Company Number: US-PFIZER INC-2013261684

PATIENT
  Age: 9 Month
  Sex: Male
  Weight: 9.07 kg

DRUGS (2)
  1. XYNTHA [Suspect]
     Indication: FACTOR VIII DEFICIENCY
     Dosage: 257 IU, WEEKLY
     Route: 042
     Dates: start: 20130906, end: 20130906
  2. XYNTHA [Suspect]
     Indication: PROPHYLAXIS

REACTIONS (1)
  - Urticaria [Recovered/Resolved]
